FAERS Safety Report 18928257 (Version 1)
Quarter: 2021Q1

REPORT INFORMATION
  Report Type: Report from Study
  Country: CA (occurrence: CA)
  Receive Date: 20210223
  Receipt Date: 20210223
  Transmission Date: 20210420
  Serious: Yes (Hospitalization)
  Sender: FDA-Public Use
  Company Number: CA-OCTA-WIL00721CA

PATIENT
  Age: 82 Year
  Sex: Female

DRUGS (1)
  1. WILATE ? VON WILLEBRAND FACTOR/COAGULATION FACTOR VIII COMPLEX (HUMAN) [Suspect]
     Active Substance: HUMAN COAGULATION FACTOR VIII/VON WILLEBRAND FACTOR COMPLEX
     Indication: VON WILLEBRAND^S DISEASE
     Route: 042
     Dates: start: 20210210

REACTIONS (11)
  - Back pain [Not Recovered/Not Resolved]
  - Small intestinal haemorrhage [Recovered/Resolved]
  - Faeces discoloured [Unknown]
  - Fatigue [Not Recovered/Not Resolved]
  - Asthenia [Not Recovered/Not Resolved]
  - Haemoglobin decreased [Unknown]
  - Tearfulness [Unknown]
  - Malaise [Not Recovered/Not Resolved]
  - Constipation [Not Recovered/Not Resolved]
  - Pyrexia [Not Recovered/Not Resolved]
  - Jaundice [Not Recovered/Not Resolved]

NARRATIVE: CASE EVENT DATE: 20210211
